FAERS Safety Report 8264781-1 (Version None)
Quarter: 2012Q2

REPORT INFORMATION
  Report Type: 
  Country: None (occurrence: None)
  Receive Date: 20120406
  Receipt Date: 20120403
  Transmission Date: 20120825
  Serious: Yes (Other)
  Sender: FDA-Public Use
  Company Number: US-JNJFOC-20120401398

PATIENT
  Age: 61 Year
  Sex: Male
  Weight: 85.28 kg

DRUGS (3)
  1. MINOXIDIL [Suspect]
     Indication: HAIR GROWTH ABNORMAL
     Dosage: RECOMMENDED AMOUNT
     Route: 061
  2. ANDROGEL [Concomitant]
     Indication: HORMONE REPLACEMENT THERAPY
     Route: 065
  3. MINOXIDIL [Suspect]
     Route: 061

REACTIONS (2)
  - UNDERDOSE [None]
  - LUPUS-LIKE SYNDROME [None]
